FAERS Safety Report 6183287-7 (Version None)
Quarter: 2009Q2

REPORT INFORMATION
  Report Type: 
  Country: None (occurrence: None)
  Receive Date: 20090507
  Receipt Date: 20090429
  Transmission Date: 20091009
  Serious: Yes (Other)
  Sender: FDA-Public Use
  Company Number: PHHY2009BR01267

PATIENT
  Age: 41 Year
  Sex: Female

DRUGS (2)
  1. TRILEPTAL [Suspect]
     Indication: BIPOLAR DISORDER
     Dosage: 300 MG, UNK
  2. VENLAFAXINE HCL [Concomitant]
     Dosage: 75 MG, QD
     Route: 048

REACTIONS (2)
  - SWELLING [None]
  - URINARY RETENTION [None]
